FAERS Safety Report 25707486 (Version 1)
Quarter: 2025Q3

REPORT INFORMATION
  Report Type: Spontaneous
  Country: US (occurrence: US)
  Receive Date: 20250820
  Receipt Date: 20250820
  Transmission Date: 20251021
  Serious: Yes (Other)
  Sender: LNK INTERNATIONAL, INC.
  Company Number: US-LNK INTERNATIONAL, INC.-2182891

PATIENT
  Sex: Female

DRUGS (1)
  1. ANTI DIARRHEAL [Suspect]
     Active Substance: LOPERAMIDE HYDROCHLORIDE
     Indication: Product used for unknown indication

REACTIONS (1)
  - Nonspecific reaction [Unknown]
